FAERS Safety Report 10192527 (Version 2)
Quarter: 2014Q2

REPORT INFORMATION
  Report Type: Spontaneous
  Country: CH (occurrence: None)
  Receive Date: 20140521
  Receipt Date: 20140630
  Transmission Date: 20141212
  Serious: Yes (Other)
  Sender: FDA-Public Use
  Company Number: 20140268

PATIENT
  Age: 65 Year
  Sex: Male

DRUGS (7)
  1. FERINJECT (FERRIC CARBOXYMALTOSE - VIFOR) (FER-VIFOR-02) (FERRIC CARBOXYMALTOSE INJECTION) 50MG/ML [Suspect]
     Indication: PRODUCT USED FOR UNKNOWN INDICATION
     Dosage: 1 IN 1 TOTAL
     Route: 040
     Dates: start: 20140409, end: 20140409
  2. OMEPRAZOLE [Concomitant]
  3. SIMVASTATIN [Concomitant]
  4. METOCLOPRAMIDE [Concomitant]
  5. CLOPIDOGREL [Concomitant]
  6. FUROSEMIDE [Concomitant]
  7. CARVEDILOL [Concomitant]

REACTIONS (3)
  - Skin discolouration [None]
  - Blister [None]
  - Inflammation [None]
